FAERS Safety Report 16517291 (Version 1)
Quarter: 2019Q3

REPORT INFORMATION
  Report Type: Spontaneous
  Country: US (occurrence: US)
  Receive Date: 20190522
  Receipt Date: 20190522
  Transmission Date: 20191004
  Serious: No
  Sender: FDA-Public Use
  Company Number: None

PATIENT
  Sex: Female

DRUGS (1)
  1. HUMIRA [Suspect]
     Active Substance: ADALIMUMAB
     Indication: PSORIATIC ARTHROPATHY
     Route: 058
     Dates: start: 20190102

REACTIONS (5)
  - Lymphadenopathy [None]
  - Nasopharyngitis [None]
  - Salivary gland disorder [None]
  - Dry mouth [None]
  - Oropharyngeal pain [None]
